FAERS Safety Report 7361350-2 (Version None)
Quarter: 2011Q1

REPORT INFORMATION
  Report Type: 
  Country: None (occurrence: None)
  Receive Date: 20110318
  Receipt Date: 20110310
  Transmission Date: 20110831
  Serious: Yes (Other)
  Sender: FDA-Public Use
  Company Number: B0705962A

PATIENT

DRUGS (1)
  1. FLOLAN [Suspect]
     Route: 042

REACTIONS (2)
  - PULMONARY EMBOLISM [None]
  - ISOLATED ADRENOCORTICOTROPIC HORMONE DEFICIENCY [None]
